FAERS Safety Report 5797653-2 (Version None)
Quarter: 2008Q3

REPORT INFORMATION
  Report Type: 
  Country: None (occurrence: None)
  Receive Date: 20080702
  Receipt Date: 20080624
  Transmission Date: 20090109
  Serious: Yes (Hospitalization)
  Sender: FDA-Public Use
  Company Number: FR-JNJFOC-20080300200

PATIENT
  Sex: Female
  Weight: 65 kg

DRUGS (7)
  1. RISPERDAL [Suspect]
     Indication: PSYCHOTIC DISORDER
     Route: 048
  2. TERCIAN [Suspect]
     Route: 048
  3. TERCIAN [Suspect]
     Route: 048
  4. TERCIAN [Suspect]
     Route: 048
  5. TERCIAN [Suspect]
     Route: 048
  6. TERCIAN [Suspect]
     Indication: PSYCHOTIC DISORDER
     Route: 048
  7. DESLORATADINE [Suspect]
     Indication: PSYCHOTIC DISORDER
     Route: 048

REACTIONS (4)
  - AGRANULOCYTOSIS [None]
  - LEUKOPENIA [None]
  - NEUTROPENIA [None]
  - PSYCHOTIC DISORDER [None]
